FAERS Safety Report 4368760-6 (Version None)
Quarter: 2004Q2

REPORT INFORMATION
  Report Type: 
  Country: None (occurrence: None)
  Receive Date: 20040528
  Receipt Date: 20040518
  Transmission Date: 20050107
  Serious: Yes (Other)
  Sender: FDA-Public Use
  Company Number: 2004033263

PATIENT
  Age: 66 Year
  Sex: Male

DRUGS (3)
  1. SORTIS (ATORVASTATIN) [Suspect]
     Indication: CORONARY ARTERIAL STENT INSERTION
     Dosage: 20 MG (1 IN 1 D), ORAL
     Route: 048
     Dates: start: 20030101
  2. BISOPROLOL FUMARATE [Concomitant]
  3. ACETYLSALICYLIC ACID SRT [Concomitant]

REACTIONS (4)
  - HEPATIC ENZYME INCREASED [None]
  - MYELODYSPLASTIC SYNDROME [None]
  - PANCYTOPENIA [None]
  - PARAESTHESIA [None]
